FAERS Safety Report 7167360-2 (Version None)
Quarter: 2010Q4

REPORT INFORMATION
  Report Type: 
  Country: None (occurrence: None)
  Receive Date: 20101216
  Receipt Date: 20101207
  Transmission Date: 20110411
  Serious: Yes (Hospitalization, Other)
  Sender: FDA-Public Use
  Company Number: JP-JNJFOC-20091102572

PATIENT
  Sex: Female
  Weight: 77 kg

DRUGS (11)
  1. DOXORUBICIN HCL [Suspect]
     Indication: OVARIAN CANCER RECURRENT
     Route: 042
  2. DOXORUBICIN HCL [Suspect]
     Route: 042
  3. DEXART [Concomitant]
     Indication: PROPHYLAXIS
     Route: 042
  4. GRANISETRON HYDROCHLORIDE [Concomitant]
     Indication: PROPHYLAXIS
     Route: 042
  5. DAI-KENCHU-TO [Concomitant]
     Indication: PROPHYLAXIS
     Route: 048
  6. AZUNOL [Concomitant]
     Indication: PROPHYLAXIS
     Route: 049
  7. MAGNESIUM OXIDE [Concomitant]
     Indication: CONSTIPATION
     Route: 048
  8. ADEROXAL [Concomitant]
     Indication: PALMAR-PLANTAR ERYTHRODYSAESTHESIA SYNDROME
     Route: 048
  9. LECICARBON [Concomitant]
     Indication: CONSTIPATION
     Route: 054
  10. ALLOID G [Concomitant]
     Indication: PALMAR-PLANTAR ERYTHRODYSAESTHESIA SYNDROME
     Route: 048
  11. PROMAC (POLAPREZINC) [Concomitant]
     Route: 048

REACTIONS (4)
  - LEUKOPENIA [None]
  - NEUTROPENIA [None]
  - OESOPHAGEAL ULCER [None]
  - STOMATITIS [None]
